FAERS Safety Report 24125550 (Version 2)
Quarter: 2025Q1

REPORT INFORMATION
  Report Type: Spontaneous
  Country: US (occurrence: US)
  Receive Date: 20240723
  Receipt Date: 20250130
  Transmission Date: 20250408
  Serious: Yes (Death, Hospitalization)
  Sender: STRIDES
  Company Number: US-STRIDES ARCOLAB LIMITED-2024SP008936

PATIENT

DRUGS (2)
  1. PREDNISOLONE [Suspect]
     Active Substance: PREDNISOLONE
     Indication: Pulmonary sarcoidosis
     Route: 065
  2. PREDNISOLONE [Suspect]
     Active Substance: PREDNISOLONE
     Route: 065

REACTIONS (8)
  - Pulmonary nocardiosis [Fatal]
  - Cerebral nocardiosis [Fatal]
  - Neurological infection [Fatal]
  - Brain abscess [Fatal]
  - Infectious pleural effusion [Fatal]
  - Cellulitis [Unknown]
  - Pneumonia [Unknown]
  - Soft tissue infection [Unknown]
